FAERS Safety Report 5015615-X (Version None)
Quarter: 2006Q2

REPORT INFORMATION
  Report Type: 
  Country: None (occurrence: None)
  Receive Date: 20060601
  Receipt Date: 20060303
  Transmission Date: 20061013
  Serious: Yes (Other)
  Sender: FDA-Public Use
  Company Number: CA-GLAXOSMITHKLINE-A0596330A

PATIENT
  Age: 58 Year
  Sex: Female

DRUGS (1)
  1. AQUAFRESH SENSITIVE TOOTHPASTE [Suspect]
     Indication: DENTAL CLEANING
     Dates: start: 20060303, end: 20060301

REACTIONS (2)
  - ASTHMA [None]
  - DYSPNOEA [None]
